FAERS Safety Report 9926754 (Version 1)
Quarter: 2014Q1

REPORT INFORMATION
  Report Type: Spontaneous
  Country: US (occurrence: US)
  Receive Date: 20140226
  Receipt Date: 20140226
  Transmission Date: 20141002
  Serious: No
  Sender: FDA-Public Use
  Company Number: US-AMGEN-USASP2013078214

PATIENT
  Age: 58 Year
  Sex: Female
  Weight: 68.03 kg

DRUGS (11)
  1. ENBREL [Suspect]
     Indication: PRODUCT USED FOR UNKNOWN INDICATION
     Dosage: 50 MG/ML, ONCE A WEEK
     Route: 058
  2. LYRICA [Concomitant]
     Dosage: 100 MG, UNK
  3. PLAQUENIL                          /00072602/ [Concomitant]
     Dosage: 200 MG, UNK
  4. CYMBALTA [Concomitant]
     Dosage: 20 MG, UNK
  5. TRAZODONE [Concomitant]
     Dosage: 150 MG, UNK
  6. KLONOPIN [Concomitant]
     Dosage: 1 MG, UNK
  7. AMBIEN CR [Concomitant]
     Dosage: 12.5 MG, UNK
  8. LORTAB                             /00607101/ [Concomitant]
     Dosage: UNK, 5 TAB
  9. FOLIC ACID [Concomitant]
     Dosage: 20 MG, UNK
  10. METHOTREXATE [Concomitant]
     Dosage: 1 G, UNK
  11. RECLAST [Concomitant]
     Dosage: 5/100ML, UNK

REACTIONS (2)
  - Sinusitis [Unknown]
  - Injection site pain [Unknown]
